FAERS Safety Report 7234960-0 (Version None)
Quarter: 2011Q1

REPORT INFORMATION
  Report Type: 
  Country: None (occurrence: None)
  Receive Date: 20110120
  Receipt Date: 20110110
  Transmission Date: 20110831
  Serious: Yes (Hospitalization)
  Sender: FDA-Public Use
  Company Number: DE-ASTELLAS-2010EU005468

PATIENT
  Sex: Male
  Weight: 29 kg

DRUGS (7)
  1. PURETHAL [Concomitant]
     Indication: SEASONAL ALLERGY
     Dosage: UNK
     Route: 058
     Dates: start: 20100203
  2. TACROLIMUS [Suspect]
     Dosage: 0.03 %, UNKNOWN/D
     Route: 065
     Dates: start: 20080606
  3. TACROLIMUS [Suspect]
     Dosage: UNK
     Route: 065
     Dates: start: 20080616
  4. BUDESONIDE [Concomitant]
     Indication: ASTHMA
     Dosage: 100 UG, BID
     Route: 055
     Dates: start: 20090320
  5. ZYRTEC [Concomitant]
     Indication: DERMATITIS ATOPIC
     Dosage: 5 MG, UNKNOWN/D
     Route: 048
     Dates: start: 20070301
  6. TACROLIMUS [Suspect]
     Indication: DERMATITIS ATOPIC
     Dosage: UNK
     Route: 065
     Dates: start: 20080616
  7. ZYRTEC [Concomitant]
     Indication: SEASONAL ALLERGY

REACTIONS (3)
  - NUCLEAR MAGNETIC RESONANCE IMAGING [None]
  - CONVULSION [None]
  - EPILEPSY [None]
